FAERS Safety Report 4691278-8 (Version None)
Quarter: 2005Q2

REPORT INFORMATION
  Report Type: 
  Country: None (occurrence: None)
  Receive Date: 20050610
  Receipt Date: 20050531
  Transmission Date: 20051028
  Serious: Yes (Hospitalization, Other)
  Sender: FDA-Public Use
  Company Number: HQWYE591926AUG04

PATIENT
  Age: 61 Year
  Sex: Female

DRUGS (3)
  1. PREMARIN [Suspect]
  2. ZOMEPIRAC (ZOMEPIRAC) [Concomitant]
  3. PROVERA [Suspect]

REACTIONS (7)
  - BREAST CANCER METASTATIC [None]
  - DRUG INTOLERANCE [None]
  - METASTASES TO BONE [None]
  - METASTASES TO SPINE [None]
  - NAUSEA [None]
  - OESTROGEN RECEPTOR ASSAY POSITIVE [None]
  - PROGESTERONE RECEPTOR ASSAY POSITIVE [None]
